FAERS Safety Report 5045645-3 (Version None)
Quarter: 2006Q3

REPORT INFORMATION
  Report Type: 
  Country: None (occurrence: None)
  Receive Date: 20060707
  Receipt Date: 20060703
  Transmission Date: 20061208
  Serious: Yes (Other)
  Sender: FDA-Public Use
  Company Number: BR-BOEHRINGER INGELHEIM PHARMACEUTICALS, INC.-2006-BP-07576BR

PATIENT
  Age: 65 Year
  Sex: Female

DRUGS (3)
  1. ATENSINA [Suspect]
     Indication: HYPERTENSION
     Route: 048
     Dates: start: 20060501
  2. OLCADIL [Concomitant]
     Indication: NERVOUSNESS
  3. LIPITOR [Concomitant]
     Indication: BLOOD CHOLESTEROL

REACTIONS (1)
  - THERAPEUTIC RESPONSE DECREASED [None]
